FAERS Safety Report 22233491 (Version 1)
Quarter: 2023Q2

REPORT INFORMATION
  Report Type: Other
  Country: US (occurrence: None)
  Receive Date: 20230420
  Receipt Date: 20230420
  Transmission Date: 20230721
  Serious: Yes (Hospitalization, Other)
  Sender: FDA-Public Use
  Company Number: US-ROCHE-3332635

PATIENT
  Age: 68 Year
  Sex: Male

DRUGS (3)
  1. RITUXIMAB [Suspect]
     Active Substance: RITUXIMAB
     Indication: Waldenstrom^s macroglobulinaemia
     Dosage: ON DAY 1 OF EACH CYCLE
     Route: 042
  2. BENDAMUSTINE [Suspect]
     Active Substance: BENDAMUSTINE
     Indication: Waldenstrom^s macroglobulinaemia
     Dosage: ON DAYS 1 AND 2 OF EACH CYCLE
     Route: 065
  3. PREDNISONE [Concomitant]
     Active Substance: PREDNISONE

REACTIONS (5)
  - Tumour lysis syndrome [Unknown]
  - Sepsis [Unknown]
  - Acute kidney injury [Unknown]
  - Atrial fibrillation [Unknown]
  - Cryoglobulinaemia [Unknown]
